FAERS Safety Report 7365697-5 (Version None)
Quarter: 2011Q1

REPORT INFORMATION
  Report Type: 
  Country: None (occurrence: None)
  Receive Date: 20110322
  Receipt Date: 20110310
  Transmission Date: 20110831
  Serious: Yes (Other)
  Sender: FDA-Public Use
  Company Number: US-AMGEN-USASP2011014200

PATIENT
  Age: 40 Year
  Sex: Female
  Weight: 57.59 kg

DRUGS (2)
  1. PREDNISONE [Concomitant]
     Indication: RHEUMATOID ARTHRITIS
     Dosage: UNK
  2. ENBREL [Suspect]
     Indication: RHEUMATOID ARTHRITIS
     Dosage: UNK

REACTIONS (3)
  - WHITE BLOOD CELL COUNT INCREASED [None]
  - CONGENITAL ANOMALY [None]
  - ABORTION SPONTANEOUS [None]
